FAERS Safety Report 9238278 (Version 1)
Quarter: 2013Q1

REPORT INFORMATION
  Report Type: Spontaneous
  Country: US (occurrence: None)
  Receive Date: 20121107
  Receipt Date: 20121107
  Transmission Date: 20140127
  Serious: Yes (Other)
  Sender: FDA-Public Use
  Company Number: 2011-00746

PATIENT
  Age: 48 Year
  Sex: Female

DRUGS (7)
  1. LISINOPRIL [Suspect]
     Indication: BLOOD PRESSURE
  2. CALCIUM (UNKNOWN) [Concomitant]
  3. SERTRALINE HCL (ZOLOFT) (UNKNOWN) [Concomitant]
  4. EMERGEN-C (UNKNOWN) [Concomitant]
  5. AMLODIPINE (NORVASC) (UNKNOWN) [Concomitant]
  6. MULTIVITAMIN (UNKNOWN) [Concomitant]
  7. OMEGA 3 FISH OIL (UNKNOWN) [Concomitant]

REACTIONS (1)
  - Pancreatitis acute [None]
